FAERS Safety Report 23415494 (Version 3)
Quarter: 2024Q3

REPORT INFORMATION
  Report Type: Report from Study
  Country: US (occurrence: US)
  Receive Date: 20240118
  Receipt Date: 20240711
  Transmission Date: 20241017
  Serious: Yes (Other)
  Sender: ABBVIE
  Company Number: US-ABBVIE-5591339

PATIENT
  Sex: Female

DRUGS (1)
  1. HUMIRA [Suspect]
     Active Substance: ADALIMUMAB
     Indication: Hidradenitis
     Route: 058
     Dates: start: 20230719

REACTIONS (16)
  - Tendon rupture [Recovering/Resolving]
  - Injection site pruritus [Recovered/Resolved]
  - Injection site pain [Recovered/Resolved]
  - Cyst [Not Recovered/Not Resolved]
  - Arthritis [Not Recovered/Not Resolved]
  - Contusion [Not Recovered/Not Resolved]
  - Furuncle [Recovered/Resolved]
  - Exostosis [Recovering/Resolving]
  - Wound complication [Not Recovered/Not Resolved]
  - Injection site mass [Recovered/Resolved]
  - Tendon rupture [Not Recovered/Not Resolved]
  - Exostosis [Not Recovered/Not Resolved]
  - Hidradenitis [Unknown]
  - Furuncle [Not Recovered/Not Resolved]
  - Swelling [Not Recovered/Not Resolved]
  - Injection site discharge [Unknown]

NARRATIVE: CASE EVENT DATE: 20230101
